FAERS Safety Report 15369122 (Version 1)
Quarter: 2018Q3

REPORT INFORMATION
  Report Type: Spontaneous
  Country: DE (occurrence: DE)
  Receive Date: 20180911
  Receipt Date: 20180911
  Transmission Date: 20181010
  Serious: Yes (Other)
  Sender: FDA-Public Use
  Company Number: DE-SUN PHARMACEUTICAL INDUSTRIES LTD-2018RR-183946

PATIENT
  Age: 68 Year
  Sex: Male

DRUGS (6)
  1. TEMOZOLOMIDE. [Suspect]
     Active Substance: TEMOZOLOMIDE
     Indication: CHEMOTHERAPY
     Dosage: UNK ()
     Route: 048
     Dates: start: 20120201, end: 20120402
  2. IPILIMUMAB [Suspect]
     Active Substance: IPILIMUMAB
     Indication: NEUROENDOCRINE TUMOUR
     Dosage: 70 MG, Q4WK
     Route: 065
     Dates: start: 20140402
  3. SANDOSTATIN [Suspect]
     Active Substance: OCTREOTIDE ACETATE
     Indication: PRODUCT USED FOR UNKNOWN INDICATION
     Dosage: 30MG/12 HOUR
     Route: 065
  4. CAPECITABINE. [Suspect]
     Active Substance: CAPECITABINE
     Indication: CHEMOTHERAPY
     Dosage: ()
     Route: 065
  5. IPILIMUMAB [Suspect]
     Active Substance: IPILIMUMAB
     Indication: PRODUCT USED FOR UNKNOWN INDICATION
     Dosage: 70 MG, Q4WK
     Route: 065
     Dates: start: 200411, end: 201606
  6. KEYTRUDA [Suspect]
     Active Substance: PEMBROLIZUMAB
     Indication: NEUROENDOCRINE TUMOUR
     Dosage: 150 MG, Q3WK
     Route: 065
     Dates: start: 20141109, end: 201606

REACTIONS (10)
  - Pharyngitis [Unknown]
  - Colitis [Unknown]
  - Thrombocytopenia [Unknown]
  - Sjogren^s syndrome [Unknown]
  - Malignant neoplasm progression [Unknown]
  - Thyroiditis [Unknown]
  - Product use in unapproved indication [Unknown]
  - Leukopenia [Unknown]
  - Pneumonitis [Not Recovered/Not Resolved]
  - Facial paralysis [Unknown]

NARRATIVE: CASE EVENT DATE: 2012
